FAERS Safety Report 18850722 (Version 1)
Quarter: 2021Q1

REPORT INFORMATION
  Report Type: Spontaneous
  Country: US (occurrence: US)
  Receive Date: 20210204
  Receipt Date: 20210204
  Transmission Date: 20210420
  Serious: Yes (Hospitalization)
  Sender: FDA-Public Use
  Company Number: None

PATIENT
  Age: 53 Year
  Sex: Female
  Weight: 65.9 kg

DRUGS (1)
  1. REMICADE [Suspect]
     Active Substance: INFLIXIMAB

REACTIONS (4)
  - Small intestinal obstruction [None]
  - Abdominal pain lower [None]
  - Nausea [None]
  - White blood cell count increased [None]

NARRATIVE: CASE EVENT DATE: 20181018
